FAERS Safety Report 24884741 (Version 4)
Quarter: 2025Q1

REPORT INFORMATION
  Report Type: Spontaneous
  Country: US (occurrence: US)
  Receive Date: 20250124
  Receipt Date: 20250220
  Transmission Date: 20250408
  Serious: No
  Sender: PFIZER
  Company Number: US-PFIZER INC-202500016732

PATIENT
  Age: 71 Year
  Sex: Female

DRUGS (7)
  1. ELIQUIS [Suspect]
     Active Substance: APIXABAN
     Indication: Cerebrovascular accident
     Dosage: 5 MG, 2X/DAY
     Dates: start: 20250120
  2. ELIQUIS [Suspect]
     Active Substance: APIXABAN
     Indication: Blood pressure increased
  3. ELIQUIS [Suspect]
     Active Substance: APIXABAN
     Indication: Heart rate increased
  4. XELJANZ XR [Suspect]
     Active Substance: TOFACITINIB CITRATE
  5. SOTALOL [Suspect]
     Active Substance: SOTALOL
     Indication: Blood pressure abnormal
     Dosage: 40 MG, 2X/DAY
     Dates: start: 20250120
  6. SOTALOL [Suspect]
     Active Substance: SOTALOL
     Indication: Heart rate abnormal
  7. SOTALOL [Suspect]
     Active Substance: SOTALOL
     Indication: Cerebrovascular accident

REACTIONS (1)
  - Back pain [Unknown]

NARRATIVE: CASE EVENT DATE: 20250101
